FAERS Safety Report 5097237-8 (Version None)
Quarter: 2006Q3

REPORT INFORMATION
  Report Type: 
  Country: None (occurrence: None)
  Receive Date: 20060906
  Receipt Date: 20060829
  Transmission Date: 20061208
  Serious: Yes (Other)
  Sender: FDA-Public Use
  Company Number: 2006UW17000

PATIENT
  Age: 78 Year
  Sex: Female
  Weight: 81.8 kg

DRUGS (9)
  1. NEXIUM [Suspect]
     Indication: GASTROOESOPHAGEAL REFLUX DISEASE
     Route: 048
  2. BENEFIBER FIBER SUPPLEMENT SUGAR FREE [Suspect]
     Indication: NUTRITIONAL SUPPORT
     Route: 048
  3. ZOCOR [Concomitant]
  4. GLYBURIDE [Concomitant]
  5. ATENOLOL [Concomitant]
  6. ZOLOFT [Concomitant]
  7. LEVOTHROID [Concomitant]
  8. DIOVAN HCT [Concomitant]
  9. DITROPAN XL [Concomitant]

REACTIONS (5)
  - DRUG INTERACTION [None]
  - HERPES ZOSTER [None]
  - PAIN [None]
  - PRURITUS [None]
  - PRURITUS GENERALISED [None]
